FAERS Safety Report 23235426 (Version 10)
Quarter: 2025Q1

REPORT INFORMATION
  Report Type: Spontaneous
  Country: US (occurrence: US)
  Receive Date: 20231128
  Receipt Date: 20250326
  Transmission Date: 20250408
  Serious: Yes (Other)
  Sender: PFIZER
  Company Number: US-PFIZER INC-PV202300102020

PATIENT
  Age: 73 Year
  Sex: Female
  Weight: 76.508 kg

DRUGS (3)
  1. IBRANCE [Suspect]
     Active Substance: PALBOCICLIB
     Indication: Breast cancer metastatic
     Route: 048
  2. IBRANCE [Suspect]
     Active Substance: PALBOCICLIB
     Indication: Breast cancer female
  3. IBRANCE [Suspect]
     Active Substance: PALBOCICLIB
     Indication: Breast cancer female

REACTIONS (5)
  - Rheumatoid arthritis [Unknown]
  - Barrett^s oesophagus [Unknown]
  - Trigeminal neuralgia [Unknown]
  - Tachycardia [Unknown]
  - Blood cholesterol abnormal [Unknown]
